FAERS Safety Report 18512487 (Version 2)
Quarter: 2020Q4

REPORT INFORMATION
  Report Type: Spontaneous
  Country: US (occurrence: US)
  Receive Date: 20201117
  Receipt Date: 20201228
  Transmission Date: 20210114
  Serious: Yes (Other)
  Sender: FDA-Public Use
  Company Number: US-BAUSCH-BL-2020-032417

PATIENT
  Age: 74 Year
  Sex: Female

DRUGS (2)
  1. LUMIFY [Suspect]
     Active Substance: BRIMONIDINE TARTRATE
     Dosage: STOPPED 2 MONTHS AGO.
     Route: 047
     Dates: end: 2020
  2. LUMIFY [Suspect]
     Active Substance: BRIMONIDINE TARTRATE
     Indication: OCULAR HYPERAEMIA
     Dosage: STARTED TO USE THE PRODUCT A YEAR AGO
     Route: 047
     Dates: start: 2019

REACTIONS (2)
  - Eye disorder [Not Recovered/Not Resolved]
  - Eyelid injury [Not Recovered/Not Resolved]
